FAERS Safety Report 6158244-7 (Version None)
Quarter: 2009Q2

REPORT INFORMATION
  Report Type: 
  Country: None (occurrence: None)
  Receive Date: 20090417
  Receipt Date: 20090407
  Transmission Date: 20091009
  Serious: Yes (Hospitalization, Other)
  Sender: FDA-Public Use
  Company Number: SE-BAYER-200918109GPV

PATIENT
  Age: 39 Year
  Sex: Male

DRUGS (1)
  1. BETAFERON [Suspect]
     Indication: MULTIPLE SCLEROSIS
     Dosage: TOTAL DAILY DOSE: 250 ?G
     Route: 058
     Dates: start: 20070801

REACTIONS (12)
  - BURNING SENSATION [None]
  - CHILLS [None]
  - DYSKINESIA [None]
  - FATIGUE [None]
  - FEELING ABNORMAL [None]
  - HEADACHE [None]
  - INFLUENZA LIKE ILLNESS [None]
  - PAIN [None]
  - PAIN IN EXTREMITY [None]
  - SHOCK [None]
  - SLEEP DISORDER [None]
  - TESTICULAR PAIN [None]
